FAERS Safety Report 5218373-9 (Version None)
Quarter: 2007Q1

REPORT INFORMATION
  Report Type: 
  Country: None (occurrence: None)
  Receive Date: 20061201
  Receipt Date: 20060103
  Transmission Date: 20070707
  Serious: Yes (Life-Threatening)
  Sender: FDA-Public Use
  Company Number: PHEH2006US00454

PATIENT
  Sex: Female

DRUGS (1)
  1. LAMISIL [Suspect]
     Dosage: ORAL
     Route: 048

REACTIONS (4)
  - ALOPECIA [None]
  - ONYCHOCLASIS [None]
  - RASH [None]
  - SWELLING [None]
